FAERS Safety Report 19549185 (Version 1)
Quarter: 2021Q3

REPORT INFORMATION
  Report Type: Spontaneous
  Country: LB (occurrence: LB)
  Receive Date: 20210715
  Receipt Date: 20210715
  Transmission Date: 20211014
  Serious: Yes (Hospitalization)
  Sender: FDA-Public Use
  Company Number: LB-LUPIN PHARMACEUTICALS INC.-2021-11786

PATIENT
  Age: 28 Year
  Sex: Male

DRUGS (22)
  1. FOLATE [Suspect]
     Active Substance: FOLATE SODIUM
     Indication: MYELOPATHY
     Dosage: UNK
     Route: 065
     Dates: start: 2020
  2. CYANOCOBALAMIN. [Suspect]
     Active Substance: CYANOCOBALAMIN
     Indication: MYELOPATHY
     Dosage: 100 MICROGRAM, QD
     Route: 030
     Dates: start: 2020
  3. CYTARABINE. [Concomitant]
     Active Substance: CYTARABINE
     Indication: T-CELL TYPE ACUTE LEUKAEMIA
     Dosage: UNK
     Route: 037
     Dates: start: 2019
  4. CYCLOPHOSPHAMIDE. [Concomitant]
     Active Substance: CYCLOPHOSPHAMIDE
     Indication: T-CELL TYPE ACUTE LEUKAEMIA
     Dosage: UNK
     Route: 065
     Dates: start: 2019
  5. CYTARABINE. [Concomitant]
     Active Substance: CYTARABINE
     Dosage: UNK, AT THE RECURRENCE OF ACUTE LYMPHOBLASTIC LEUKAEMIA
     Route: 065
     Dates: start: 20200712
  6. METHYLPREDNISOLONE. [Suspect]
     Active Substance: METHYLPREDNISOLONE
     Indication: MYELOPATHY
     Dosage: 1 MILLIGRAM/KILOGRAM, QD
     Route: 042
     Dates: start: 2020
  7. PREDNISONE. [Concomitant]
     Active Substance: PREDNISONE
     Dosage: UNK
     Route: 065
     Dates: start: 2020
  8. 6?MERCAPTOPURINE MONOHYDRATE [Concomitant]
     Active Substance: MERCAPTOPURINE
     Indication: T-CELL TYPE ACUTE LEUKAEMIA
     Dosage: UNK
     Route: 065
     Dates: start: 2019
  9. METHOTREXATE. [Concomitant]
     Active Substance: METHOTREXATE
     Dosage: UNK, AT THE RECURRENCE OF ACUTE LYMPHOBLASTIC LEUKAEMIA
     Route: 037
     Dates: start: 20200712
  10. GABAPENTIN. [Concomitant]
     Active Substance: GABAPENTIN
     Indication: PRODUCT USED FOR UNKNOWN INDICATION
     Dosage: 300 MILLIGRAM, TID
     Route: 065
     Dates: start: 2020
  11. LEUCOVORIN. [Suspect]
     Active Substance: LEUCOVORIN
     Indication: MYELOPATHY
     Dosage: 20 MILLIGRAM, QID
     Route: 042
     Dates: start: 2020
  12. CYTARABINE. [Concomitant]
     Active Substance: CYTARABINE
     Dosage: 100 MILLIGRAM, TWO DOSES FOLLOWED BY ONCE WEEKLY ALTERNATING DOSES
     Route: 037
     Dates: start: 202007
  13. VINCRISTINE [Concomitant]
     Active Substance: VINCRISTINE
     Dosage: UNK
     Route: 065
     Dates: start: 2020
  14. PREDNISONE. [Concomitant]
     Active Substance: PREDNISONE
     Indication: T-CELL TYPE ACUTE LEUKAEMIA
     Dosage: UNK
     Route: 065
     Dates: start: 2019
  15. DAUNORUBICIN [Concomitant]
     Active Substance: DAUNORUBICIN
     Indication: T-CELL TYPE ACUTE LEUKAEMIA
     Dosage: UNK
     Route: 065
     Dates: start: 2020
  16. METHYLPREDNISOLONE. [Suspect]
     Active Substance: METHYLPREDNISOLONE
     Dosage: 10 MILLIGRAM/KILOGRAM
     Route: 042
     Dates: start: 2020
  17. VINCRISTINE [Concomitant]
     Active Substance: VINCRISTINE
     Indication: T-CELL TYPE ACUTE LEUKAEMIA
     Dosage: UNK, EIGHT CYCLES
     Route: 065
     Dates: start: 2019
  18. DOXORUBICIN [Concomitant]
     Active Substance: DOXORUBICIN
     Indication: T-CELL TYPE ACUTE LEUKAEMIA
     Dosage: UNK, EIGHT CYCLES
     Route: 065
     Dates: start: 2019
  19. DEXAMETHASONE. [Concomitant]
     Active Substance: DEXAMETHASONE
     Indication: T-CELL TYPE ACUTE LEUKAEMIA
     Dosage: 8 MILLIGRAM, TWO DOSES FOLLOWED BY ONCE WEEKLY ALTERNATING DOSES
     Route: 037
     Dates: start: 202007
  20. METHOTREXATE. [Concomitant]
     Active Substance: METHOTREXATE
     Indication: T-CELL TYPE ACUTE LEUKAEMIA
     Dosage: UNK
     Route: 037
     Dates: start: 2019
  21. METHOTREXATE. [Concomitant]
     Active Substance: METHOTREXATE
     Dosage: 12 MILLIGRAM, TWO DOSES FOLLOWED BY ONCE WEEKLY ALTERNATING DOSES
     Route: 037
     Dates: start: 202007
  22. L?ASPARAGINASE [Concomitant]
     Active Substance: ASPARAGINASE
     Indication: T-CELL TYPE ACUTE LEUKAEMIA
     Dosage: UNK
     Route: 065
     Dates: start: 2020

REACTIONS (1)
  - Drug ineffective [Unknown]

NARRATIVE: CASE EVENT DATE: 2020
